FAERS Safety Report 12463511 (Version 1)
Quarter: 2016Q2

REPORT INFORMATION
  Report Type: Spontaneous
  Country: FR (occurrence: FR)
  Receive Date: 20160614
  Receipt Date: 20160614
  Transmission Date: 20160815
  Serious: Yes (Life-Threatening, Hospitalization)
  Sender: FDA-Public Use
  Company Number: FR-SA-2016SA109788

PATIENT
  Age: 44 Year
  Sex: Male

DRUGS (30)
  1. OFLOXACIN. [Suspect]
     Active Substance: OFLOXACIN
     Indication: STAPHYLOCOCCUS TEST POSITIVE
     Route: 048
     Dates: start: 20160418, end: 20160515
  2. CETIRIZINE [Concomitant]
     Active Substance: CETIRIZINE HYDROCHLORIDE
  3. PARACETAMOL [Concomitant]
     Active Substance: ACETAMINOPHEN
  4. LAMALINE [Concomitant]
     Active Substance: ACETAMINOPHEN\CAFFEINE\OPIUM
  5. ARESTAL [Concomitant]
     Active Substance: LOPERAMIDE OXIDE
     Dosage: FREQ: IF REQUESTED
  6. MICARDIS [Concomitant]
     Active Substance: TELMISARTAN
  7. DEXAMETHASONE. [Concomitant]
     Active Substance: DEXAMETHASONE
     Dates: start: 20160318
  8. FUCIDINE [Concomitant]
     Active Substance: FUSIDIC ACID
  9. ZOVIRAX [Concomitant]
     Active Substance: ACYCLOVIR
     Dosage: FORM:POWDER FOR INJECTABLE SOLUTION
     Route: 042
     Dates: start: 20160319, end: 20160323
  10. BRONCHOKOD [Concomitant]
     Active Substance: CARBOCYSTEINE
  11. AMLODIPINE [Concomitant]
     Active Substance: AMLODIPINE BESYLATE
  12. DAFALGAN [Concomitant]
     Active Substance: ACETAMINOPHEN
  13. ECONAZOLE [Concomitant]
     Active Substance: ECONAZOLE
  14. METEOSPASMYL [Concomitant]
     Active Substance: ALVERINE CITRATE\DIMETHICONE
  15. NOVORAPID [Concomitant]
     Active Substance: INSULIN ASPART
  16. CEFOTAXIME [Suspect]
     Active Substance: CEFOTAXIME SODIUM
     Indication: STAPHYLOCOCCUS TEST POSITIVE
     Route: 042
     Dates: start: 20160321, end: 20160418
  17. CEFTRIAXONE. [Concomitant]
     Active Substance: CEFTRIAXONE
     Dosage: FORM:POWDER FOR SOLUTION FOR INFUSION
     Dates: start: 20160318, end: 20160321
  18. PIVALONE [Concomitant]
     Active Substance: TIXOCORTOL PIVALATE
  19. FOSFOCINE [Concomitant]
     Active Substance: FOSFOMYCIN
     Route: 042
     Dates: start: 20160422, end: 20160423
  20. DALACINE [Concomitant]
     Active Substance: CLINDAMYCIN HYDROCHLORIDE
     Route: 048
     Dates: start: 20160423, end: 20160515
  21. LOVENOX [Concomitant]
     Active Substance: ENOXAPARIN SODIUM
  22. FLUOXETINE [Concomitant]
     Active Substance: FLUOXETINE HYDROCHLORIDE
  23. OMEPRAZOLE. [Concomitant]
     Active Substance: OMEPRAZOLE
  24. GENTAMICIN. [Concomitant]
     Active Substance: GENTAMICIN
     Dates: start: 20160318
  25. AMOXICILLIN. [Concomitant]
     Active Substance: AMOXICILLIN
     Dates: start: 20160318, end: 20160319
  26. CUBICIN [Suspect]
     Active Substance: DAPTOMYCIN
     Indication: STAPHYLOCOCCUS TEST POSITIVE
     Route: 042
     Dates: start: 20160321, end: 20160501
  27. INSULIN [Concomitant]
     Active Substance: INSULIN NOS
  28. RIFADINE [Suspect]
     Active Substance: RIFAMPIN
     Indication: BRAIN ABSCESS
     Route: 042
     Dates: start: 20160418, end: 20160422
  29. OFLOXACIN. [Suspect]
     Active Substance: OFLOXACIN
     Indication: STAPHYLOCOCCUS TEST POSITIVE
     Dosage: 200 MG/40 ML, SOLUTION FOR INFUSION
     Route: 042
     Dates: start: 20160515, end: 20160517
  30. DALACINE [Concomitant]
     Active Substance: CLINDAMYCIN HYDROCHLORIDE
     Route: 042
     Dates: start: 20160515, end: 20160517

REACTIONS (4)
  - Lung disorder [Recovering/Resolving]
  - Eosinophil count increased [Not Recovered/Not Resolved]
  - Pruritus [Not Recovered/Not Resolved]
  - Rash [Not Recovered/Not Resolved]

NARRATIVE: CASE EVENT DATE: 201604
